FAERS Safety Report 6083368-2 (Version None)
Quarter: 2009Q1

REPORT INFORMATION
  Report Type: 
  Country: None (occurrence: None)
  Receive Date: 20090219
  Receipt Date: 20090212
  Transmission Date: 20090719
  Serious: Yes (Hospitalization)
  Sender: FDA-Public Use
  Company Number: FR-BAYER-200913574GPV

PATIENT
  Age: 70 Year
  Sex: Male

DRUGS (10)
  1. CIFLOX [Suspect]
     Indication: FURUNCLE
     Dosage: UNIT DOSE: 500 MG
     Route: 048
     Dates: start: 20080821, end: 20080826
  2. BISEPTINE [Suspect]
     Indication: FURUNCLE
     Route: 003
     Dates: start: 20080821, end: 20080826
  3. AUGMENTIN '125' [Suspect]
     Indication: FURUNCLE
     Dosage: UNIT DOSE: 1 G
     Route: 065
     Dates: start: 20080821, end: 20080826
  4. FUCIDINE CAP [Suspect]
     Indication: FURUNCLE
     Route: 003
     Dates: start: 20080821, end: 20080826
  5. CRESTOR [Concomitant]
     Indication: HYPERCHOLESTEROLAEMIA
     Dosage: UNIT DOSE: 10 MG
     Route: 048
  6. ATACAND [Concomitant]
     Indication: HYPERTENSION
     Dosage: UNIT DOSE: 8 MG
     Route: 048
  7. NEBILOX [Concomitant]
     Indication: CARDIAC FAILURE
     Dosage: UNIT DOSE: 5 MG
     Route: 048
  8. PREVISCAN [Concomitant]
     Indication: THROMBOSIS
     Dosage: UNIT DOSE: 20 MG
     Route: 048
  9. DALACINE [Concomitant]
     Indication: DRUG USE FOR UNKNOWN INDICATION
     Route: 065
  10. VANCOMYCINE [Concomitant]
     Indication: DRUG USE FOR UNKNOWN INDICATION

REACTIONS (1)
  - RASH PAPULAR [None]
